FAERS Safety Report 4343561-3 (Version None)
Quarter: 2004Q2

REPORT INFORMATION
  Report Type: 
  Country: None (occurrence: None)
  Receive Date: 20040419
  Receipt Date: 20040406
  Transmission Date: 20050107
  Serious: Yes (Hospitalization)
  Sender: FDA-Public Use
  Company Number: 200314600BCC

PATIENT
  Age: 83 Year
  Sex: Female
  Weight: 72.5755 kg

DRUGS (8)
  1. ASPIRIN [Suspect]
     Indication: MYOCARDIAL INFARCTION
     Dosage: SEE IMAGE
     Route: 048
  2. ASPIRIN [Suspect]
     Indication: PROPHYLAXIS
     Dosage: SEE IMAGE
     Route: 048
  3. ARTHRITIS MEDICATION [Concomitant]
  4. HYZAAR [Concomitant]
  5. LOVASTATIN [Concomitant]
  6. GLUCOPHAGE [Concomitant]
  7. IRON [Concomitant]
  8. GLYBURIDE [Concomitant]

REACTIONS (5)
  - ANAEMIA [None]
  - FAECES DISCOLOURED [None]
  - HAEMORRHAGE [None]
  - LOSS OF CONSCIOUSNESS [None]
  - MEDICATION ERROR [None]
